FAERS Safety Report 13367629 (Version 1)
Quarter: 2017Q1

REPORT INFORMATION
  Report Type: Spontaneous
  Country: US (occurrence: US)
  Receive Date: 20170324
  Receipt Date: 20170324
  Transmission Date: 20170429
  Serious: Yes (Other)
  Sender: FDA-Public Use
  Company Number: US-BAYER-2017-054118

PATIENT
  Sex: Female

DRUGS (1)
  1. MIRENA [Suspect]
     Active Substance: LEVONORGESTREL
     Indication: CONTRACEPTION
     Dosage: 20 MCG/24HR, CONT
     Route: 015
     Dates: end: 20160107

REACTIONS (11)
  - Gardnerella infection [None]
  - Medical device discomfort [None]
  - Vaginal haemorrhage [None]
  - Abdominal pain [None]
  - Urinary tract disorder [None]
  - Menstrual disorder [None]
  - Depression [None]
  - Pelvic pain [None]
  - Genital haemorrhage [None]
  - Infertility female [None]
  - Pain [None]

NARRATIVE: CASE EVENT DATE: 2016
